FAERS Safety Report 24055091 (Version 3)
Quarter: 2025Q1

REPORT INFORMATION
  Report Type: Report from Study
  Country: US (occurrence: US)
  Receive Date: 20240705
  Receipt Date: 20250304
  Transmission Date: 20250408
  Serious: Yes (Other)
  Sender: TAKEDA
  Company Number: US-PAREXEL-2021-KAM-US003482

PATIENT
  Age: 73 Year
  Sex: Male
  Weight: 77 kg

DRUGS (21)
  1. GLASSIA [Suspect]
     Active Substance: .ALPHA.1-PROTEINASE INHIBITOR HUMAN
     Indication: Alpha-1 antitrypsin deficiency
     Dosage: 9450 MILLIGRAM, Q2WEEKS
     Dates: start: 20160223
  2. GLASSIA [Suspect]
     Active Substance: .ALPHA.1-PROTEINASE INHIBITOR HUMAN
     Dosage: 120 MILLIGRAM/KILOGRAM, Q2WEEKS
  3. EPINEPHRINE [Concomitant]
     Active Substance: EPINEPHRINE
  4. SODIUM CHLORIDE [Concomitant]
     Active Substance: SODIUM CHLORIDE
  5. VITAMIN D3 [Concomitant]
     Active Substance: CHOLECALCIFEROL
  6. FLUAD QUADRIVALENT NOS [Concomitant]
     Active Substance: INFLUENZA A VIRUS A/HONG KONG/2671/2019 IVR-208 (H3N2) ANTIGEN (FORMALDEHYDE INACTIVATED)\INFLUENZA
  7. NORVASC [Concomitant]
     Active Substance: AMLODIPINE BESYLATE
  8. TUMS [Concomitant]
     Active Substance: CALCIUM CARBONATE
  9. OXYGEN [Concomitant]
     Active Substance: OXYGEN
  10. DIPHENHYDRAMINE HYDROCHLORIDE [Concomitant]
     Active Substance: DIPHENHYDRAMINE HYDROCHLORIDE
  11. Lmx [Concomitant]
  12. STIOLTO RESPIMAT [Concomitant]
     Active Substance: OLODATEROL HYDROCHLORIDE\TIOTROPIUM BROMIDE MONOHYDRATE
  13. LEVOFLOXACIN [Concomitant]
     Active Substance: LEVOFLOXACIN
  14. DIPHENHYDRAMINE [Concomitant]
     Active Substance: DIPHENHYDRAMINE
  15. PREDNISONE [Concomitant]
     Active Substance: PREDNISONE
  16. DOXYCYCLINE [Concomitant]
     Active Substance: DOXYCYCLINE
  17. OMEPRAZOLE [Concomitant]
     Active Substance: OMEPRAZOLE
  18. VITAMIN D [Concomitant]
     Active Substance: VITAMIN D NOS
  19. TYLENOL [Concomitant]
     Active Substance: ACETAMINOPHEN
  20. Aspirine ec [Concomitant]
  21. AMLODIPINE BESYLATE [Concomitant]
     Active Substance: AMLODIPINE BESYLATE

REACTIONS (8)
  - Splenic artery aneurysm [Unknown]
  - Cataract [Unknown]
  - Pain [Unknown]
  - Exposure to SARS-CoV-2 [Unknown]
  - COVID-19 [Recovered/Resolved]
  - Incorrect dose administered [Unknown]
  - Inappropriate schedule of product administration [Unknown]
  - Headache [Unknown]

NARRATIVE: CASE EVENT DATE: 20220602
